FAERS Safety Report 13143938 (Version 3)
Quarter: 2020Q2

REPORT INFORMATION
  Report Type: Spontaneous
  Country: CA (occurrence: CA)
  Receive Date: 20170124
  Receipt Date: 20200625
  Transmission Date: 20200713
  Serious: Yes (Hospitalization, Disabling, Other)
  Sender: FDA-Public Use
  Company Number: CA-ROCHE-1880355

PATIENT
  Age: 65 Year
  Sex: Male

DRUGS (4)
  1. CAPECITABINE. [Suspect]
     Active Substance: CAPECITABINE
     Indication: RECTAL ADENOCARCINOMA
     Dosage: FREQUENCY: EVERY 1 DAY
     Route: 048
  2. EFUDEX [Suspect]
     Active Substance: FLUOROURACIL
     Indication: RECTAL ADENOCARCINOMA
     Route: 042
  3. FOLINIC ACID [Concomitant]
     Active Substance: LEUCOVORIN
     Indication: RECTAL ADENOCARCINOMA
     Route: 042
  4. OXALIPLATIN. [Suspect]
     Active Substance: OXALIPLATIN
     Indication: RECTAL ADENOCARCINOMA
     Route: 042

REACTIONS (9)
  - Recall phenomenon [Recovering/Resolving]
  - Skin exfoliation [Recovered/Resolved]
  - Dermatitis [Recovered/Resolved]
  - Palmar-plantar erythrodysaesthesia syndrome [Unknown]
  - Therapeutic product effect incomplete [Recovered/Resolved]
  - Myositis [Unknown]
  - Erythema [Recovered/Resolved]
  - Neuropathy peripheral [Unknown]
  - Skin abrasion [Recovered/Resolved]
